FAERS Safety Report 11391711 (Version 1)
Quarter: 2015Q3

REPORT INFORMATION
  Report Type: Spontaneous
  Country: CA (occurrence: CA)
  Receive Date: 20150818
  Receipt Date: 20150818
  Transmission Date: 20151125
  Serious: Yes (Hospitalization, Disabling)
  Sender: FDA-Public Use
  Company Number: CA-TEVA-587187ACC

PATIENT
  Age: 68 Year
  Sex: Male
  Weight: 57.66 kg

DRUGS (1)
  1. TOPIRAMATE. [Suspect]
     Active Substance: TOPIRAMATE
     Indication: AFFECTIVE DISORDER
     Dosage: 500 MILLIGRAM DAILY;
     Route: 065

REACTIONS (2)
  - Product substitution issue [Recovered/Resolved]
  - Mania [Recovered/Resolved]
